FAERS Safety Report 21931061 (Version 1)
Quarter: 2023Q1

REPORT INFORMATION
  Report Type: Spontaneous
  Country: US (occurrence: None)
  Receive Date: 20230130
  Receipt Date: 20230130
  Transmission Date: 20230417
  Serious: Yes (Hospitalization, Disabling, Other)
  Sender: FDA-Public Use
  Company Number: None

PATIENT
  Age: 80 Year
  Sex: Female
  Weight: 71.21 kg

DRUGS (1)
  1. ZOLEDRONIC ACID [Suspect]
     Active Substance: ZOLEDRONIC ACID

REACTIONS (7)
  - Pain [None]
  - Pyrexia [None]
  - Movement disorder [None]
  - Infusion related reaction [None]
  - Headache [None]
  - Economic problem [None]
  - Unevaluable event [None]

NARRATIVE: CASE EVENT DATE: 20220920
